FAERS Safety Report 12677781 (Version 1)
Quarter: 2016Q3

REPORT INFORMATION
  Report Type: Spontaneous
  Country: US (occurrence: US)
  Receive Date: 20160823
  Receipt Date: 20160823
  Transmission Date: 20161109
  Serious: No
  Sender: FDA-Public Use
  Company Number: US-FRI-1000085108

PATIENT
  Age: 53 Year
  Sex: Female

DRUGS (2)
  1. SAPHRIS [Suspect]
     Active Substance: ASENAPINE MALEATE
     Indication: DEPRESSION
     Dosage: 5 MG
     Route: 048
     Dates: start: 201604, end: 20160525
  2. EFFEXOR [Suspect]
     Active Substance: VENLAFAXINE HYDROCHLORIDE
     Indication: DEPRESSION
     Dosage: 75 MG
     Route: 048

REACTIONS (6)
  - Dysphagia [Recovered/Resolved]
  - Off label use [Recovered/Resolved]
  - Hypoaesthesia oral [Recovering/Resolving]
  - Dyskinesia [Recovered/Resolved]
  - Eye movement disorder [Recovered/Resolved]
  - Hypoaesthesia [Recovering/Resolving]

NARRATIVE: CASE EVENT DATE: 201604
